FAERS Safety Report 5746235-7 (Version None)
Quarter: 2008Q2

REPORT INFORMATION
  Report Type: 
  Country: None (occurrence: None)
  Receive Date: 20080522
  Receipt Date: 20080513
  Transmission Date: 20081010
  Serious: Yes (Other)
  Sender: FDA-Public Use
  Company Number: US-BAYER-200822816NA

PATIENT

DRUGS (1)
  1. SORAFENIB [Suspect]
     Indication: RENAL CELL CARCINOMA

REACTIONS (7)
  - ABDOMINAL PAIN [None]
  - ENDOTRACHEAL INTUBATION [None]
  - GASTROOESOPHAGEAL REFLUX DISEASE [None]
  - HAEMORRHAGE [None]
  - LOCAL SWELLING [None]
  - OEDEMA PERIPHERAL [None]
  - SMALL INTESTINAL OBSTRUCTION [None]
